FAERS Safety Report 8457980-7 (Version None)
Quarter: 2012Q2

REPORT INFORMATION
  Report Type: 
  Country: None (occurrence: None)
  Receive Date: 20120622
  Receipt Date: 20120612
  Transmission Date: 20120825
  Serious: Yes (Hospitalization)
  Sender: FDA-Public Use
  Company Number: JP-JNJFOC-20120606153

PATIENT
  Age: 16 Year
  Sex: Female

DRUGS (14)
  1. METHOTREXATE [Suspect]
     Route: 065
  2. ETANERCEPT [Suspect]
     Indication: JUVENILE ARTHRITIS
     Route: 065
  3. METHOTREXATE [Suspect]
     Route: 065
  4. METHOTREXATE [Suspect]
     Dosage: ESCALATED DOSE
     Route: 065
  5. METHOTREXATE [Suspect]
     Indication: JUVENILE ARTHRITIS
     Route: 065
  6. METHOTREXATE [Suspect]
     Dosage: ESCALATED DOSE
     Route: 065
  7. METHOTREXATE [Suspect]
     Route: 065
  8. METHOTREXATE [Suspect]
     Route: 065
  9. ETANERCEPT [Suspect]
     Indication: HISTIOCYTOSIS HAEMATOPHAGIC
     Route: 065
  10. METHOTREXATE [Suspect]
     Route: 065
  11. INFLIXIMAB, RECOMBINANT [Suspect]
     Indication: JUVENILE ARTHRITIS
     Dosage: 3MG/KG
     Route: 042
  12. METHOTREXATE [Suspect]
     Route: 065
  13. INFLIXIMAB, RECOMBINANT [Suspect]
     Indication: HISTIOCYTOSIS HAEMATOPHAGIC
     Dosage: 3MG/KG
     Route: 042
  14. METHOTREXATE [Suspect]
     Indication: HISTIOCYTOSIS HAEMATOPHAGIC
     Route: 065

REACTIONS (2)
  - PNEUMOCYSTIS JIROVECI PNEUMONIA [None]
  - DRUG INEFFECTIVE [None]
